FAERS Safety Report 12413823 (Version 7)
Quarter: 2017Q3

REPORT INFORMATION
  Report Type: Report from Study
  Country: DE (occurrence: DE)
  Receive Date: 20160527
  Receipt Date: 20170802
  Transmission Date: 20171127
  Serious: Yes (Other)
  Sender: FDA-Public Use
  Company Number: DE-GILEAD-2016-0214621

PATIENT
  Age: 74 Year
  Sex: Male
  Weight: 60 kg

DRUGS (45)
  1. BENDAMUSTINE [Suspect]
     Active Substance: BENDAMUSTINE
     Dosage: 90 MG/M2, QD
     Route: 042
     Dates: start: 20140204, end: 20140204
  2. BENDAMUSTINE [Suspect]
     Active Substance: BENDAMUSTINE
     Dosage: 90 MG/M2, QD
     Route: 042
     Dates: start: 20140401, end: 20140401
  3. BENDAMUSTINE [Suspect]
     Active Substance: BENDAMUSTINE
     Dosage: 90 MG/M2, QD
     Route: 042
     Dates: start: 20140429
  4. BEROTEC [Concomitant]
     Active Substance: FENOTEROL HYDROBROMIDE
     Indication: ASTHMA
     Dosage: UNK
  5. FORMOTEROL [Concomitant]
     Active Substance: FORMOTEROL
     Indication: ASTHMA
     Dosage: UNK
     Dates: start: 20160331
  6. BUDESONIDE. [Concomitant]
     Active Substance: BUDESONIDE
  7. ROCEPHIN [Concomitant]
     Active Substance: CEFTRIAXONE SODIUM
  8. CEPHORAL [Concomitant]
  9. BENDAMUSTINE [Suspect]
     Active Substance: BENDAMUSTINE
     Indication: CHRONIC LYMPHOCYTIC LEUKAEMIA
     Dosage: 90 MG/M2, QD
     Route: 042
     Dates: start: 20131209, end: 20131209
  10. ALOXI [Concomitant]
     Active Substance: PALONOSETRON HYDROCHLORIDE
  11. CIPRO [Concomitant]
     Active Substance: CIPROFLOXACIN HYDROCHLORIDE
  12. TAVANIC [Concomitant]
     Active Substance: LEVOFLOXACIN
     Indication: TREMOR
  13. IDELALISIB [Suspect]
     Active Substance: IDELALISIB
     Indication: CHRONIC LYMPHOCYTIC LEUKAEMIA
     Dosage: 300 MG, QD
     Route: 048
     Dates: start: 20160331, end: 20160629
  14. OBINUTUZUMAB. [Suspect]
     Active Substance: OBINUTUZUMAB
     Dosage: 1000 MG, QD
     Route: 042
     Dates: start: 20131216, end: 20131216
  15. OBINUTUZUMAB. [Suspect]
     Active Substance: OBINUTUZUMAB
     Dosage: 1000 MG, QD
     Route: 042
     Dates: start: 20140303, end: 20140303
  16. BENDAMUSTINE [Suspect]
     Active Substance: BENDAMUSTINE
     Dosage: 90 MG/M2, QD
     Route: 042
     Dates: start: 20140107, end: 20140107
  17. BENDAMUSTINE [Suspect]
     Active Substance: BENDAMUSTINE
     Dosage: 90 MG/M2, QD
     Route: 042
     Dates: start: 20140331, end: 20140331
  18. BENDAMUSTINE [Suspect]
     Active Substance: BENDAMUSTINE
     Dosage: 90 MG/M2, QD
     Route: 042
     Dates: start: 20140428, end: 20140428
  19. ACICLOBETA [Concomitant]
     Dosage: UNK
     Dates: start: 20160331
  20. PARACETAMOL [Concomitant]
     Active Substance: ACETAMINOPHEN
  21. OBINUTUZUMAB. [Suspect]
     Active Substance: OBINUTUZUMAB
     Dosage: 1000 MG, QD
     Route: 042
     Dates: start: 20131223, end: 20131223
  22. BENDAMUSTINE [Suspect]
     Active Substance: BENDAMUSTINE
     Dosage: 90 MG/M2, QD
     Route: 042
     Dates: start: 20140106, end: 20140106
  23. CYCLOCAPS [Concomitant]
     Indication: ASTHMA
     Dosage: UNK
     Dates: start: 20160331
  24. OBINUTUZUMAB. [Suspect]
     Active Substance: OBINUTUZUMAB
     Indication: CHRONIC LYMPHOCYTIC LEUKAEMIA
     Dosage: 25 MG, QD
     Route: 042
     Dates: start: 20131209, end: 20131209
  25. BENDAMUSTINE [Suspect]
     Active Substance: BENDAMUSTINE
     Dosage: 90 MG/M2, QD
     Route: 042
     Dates: start: 20140203, end: 20140203
  26. COTRIM [Concomitant]
     Active Substance: SULFAMETHOXAZOLE\TRIMETHOPRIM
     Dosage: UNK
     Dates: start: 20160331
  27. DEXAMETHASONE. [Concomitant]
     Active Substance: DEXAMETHASONE
  28. MABTHERA [Suspect]
     Active Substance: RITUXIMAB
     Indication: CHRONIC LYMPHOCYTIC LEUKAEMIA
     Dosage: 638 MG, QD
     Route: 042
     Dates: start: 20160331
  29. OBINUTUZUMAB. [Suspect]
     Active Substance: OBINUTUZUMAB
     Dosage: 1000 MG, QD
     Route: 042
     Dates: start: 20140203, end: 20140203
  30. OBINUTUZUMAB. [Suspect]
     Active Substance: OBINUTUZUMAB
     Dosage: 1000 MG, QD
     Route: 042
     Dates: start: 20140428, end: 20140428
  31. OBINUTUZUMAB. [Suspect]
     Active Substance: OBINUTUZUMAB
     Dosage: 1000 MG, QD
     Route: 042
     Dates: start: 20131209
  32. BENDAMUSTINE [Suspect]
     Active Substance: BENDAMUSTINE
     Dosage: 90 MG/M2, QD
     Route: 042
     Dates: start: 20140304, end: 20140304
  33. SPIRIVA [Concomitant]
     Active Substance: TIOTROPIUM BROMIDE MONOHYDRATE
     Indication: ASTHMA
     Dosage: UNK
     Dates: start: 20160331
  34. PALONOSETRON [Concomitant]
     Active Substance: PALONOSETRON
  35. OBINUTUZUMAB. [Suspect]
     Active Substance: OBINUTUZUMAB
     Dosage: 1000 MG, QD
     Route: 042
     Dates: start: 20140106, end: 20140106
  36. BENDAMUSTINE [Suspect]
     Active Substance: BENDAMUSTINE
     Dosage: 90 MG/M2, QD
     Route: 042
     Dates: start: 20131210, end: 20131210
  37. ICHTHOLAN [Concomitant]
  38. CEPHALEXIN                         /00145501/ [Concomitant]
     Active Substance: CEPHALEXIN
  39. CLARITHROMYCIN. [Concomitant]
     Active Substance: CLARITHROMYCIN
  40. OBINUTUZUMAB. [Suspect]
     Active Substance: OBINUTUZUMAB
     Dosage: 975 MG, QD
     Route: 042
     Dates: start: 20131210, end: 20131210
  41. OBINUTUZUMAB. [Suspect]
     Active Substance: OBINUTUZUMAB
     Dosage: 1000 MG, QD
     Route: 042
     Dates: start: 20140331, end: 20140331
  42. BENDAMUSTINE [Suspect]
     Active Substance: BENDAMUSTINE
     Dosage: 90 MG/M2, QD
     Route: 042
     Dates: start: 20140303, end: 20140303
  43. TAVEGIL                            /00137201/ [Concomitant]
     Active Substance: CLEMASTINE FUMARATE
     Dosage: UNK
     Dates: start: 20160331
  44. FORTECORTIN                        /00016001/ [Concomitant]
     Active Substance: DEXAMETHASONE
     Dosage: UNK
     Dates: start: 20160331
  45. BETAISODONA [Concomitant]
     Active Substance: POVIDONE-IODINE

REACTIONS (1)
  - Hepatitis B reactivation [Not Recovered/Not Resolved]

NARRATIVE: CASE EVENT DATE: 20160509
